FAERS Safety Report 7027048-5 (Version None)
Quarter: 2010Q4

REPORT INFORMATION
  Report Type: 
  Country: None (occurrence: None)
  Receive Date: 20101004
  Receipt Date: 20100930
  Transmission Date: 20110411
  Serious: Yes (Hospitalization)
  Sender: FDA-Public Use
  Company Number: AT-ELI_LILLY_AND_COMPANY-AT201010000295

PATIENT
  Sex: Female

DRUGS (1)
  1. BYETTA [Suspect]
     Indication: TYPE 2 DIABETES MELLITUS
     Dosage: 10 UNK, UNK
     Dates: start: 20100927, end: 20100929

REACTIONS (4)
  - DYSPNOEA [None]
  - GENERALISED OEDEMA [None]
  - NAUSEA [None]
  - URTICARIA [None]
